FAERS Safety Report 9937317 (Version 1)
Quarter: 2014Q1

REPORT INFORMATION
  Report Type: Spontaneous
  Country: US (occurrence: US)
  Receive Date: 20140302
  Receipt Date: 20140302
  Transmission Date: 20141002
  Serious: No
  Sender: FDA-Public Use
  Company Number: US-TEVA-464144USA

PATIENT
  Age: 69 Year
  Sex: Female
  Weight: 97.16 kg

DRUGS (7)
  1. PROAIR HFA [Suspect]
     Indication: BRONCHITIS
     Dates: start: 20140214
  2. ATENOLOL [Concomitant]
  3. K-LOR [Concomitant]
  4. PRAVASTATIN [Concomitant]
  5. BENZONATATE [Concomitant]
  6. LEVOFLOXACIN [Concomitant]
  7. FISH OIL [Concomitant]

REACTIONS (2)
  - Pain in extremity [Not Recovered/Not Resolved]
  - Mobility decreased [Not Recovered/Not Resolved]
